FAERS Safety Report 14523791 (Version 2)
Quarter: 2018Q1

REPORT INFORMATION
  Report Type: Spontaneous
  Country: US (occurrence: US)
  Receive Date: 20180213
  Receipt Date: 20180301
  Transmission Date: 20180509
  Serious: Yes (Hospitalization, Other)
  Sender: FDA-Public Use
  Company Number: US-ABBVIE-18K-163-2254402-00

PATIENT
  Age: 55 Year
  Sex: Male
  Weight: 115.77 kg

DRUGS (6)
  1. ANDROGEL [Suspect]
     Active Substance: TESTOSTERONE
     Indication: BRAIN NEOPLASM
     Dosage: 4 PUMPS EACH MORNING, AS REQUIRED
     Route: 061
     Dates: start: 201701
  2. ANDROGEL [Suspect]
     Active Substance: TESTOSTERONE
     Indication: HYPOTHALAMO-PITUITARY DISORDER
  3. DESMOPRESSIN [Concomitant]
     Active Substance: DESMOPRESSIN
     Indication: POLLAKIURIA
  4. HYDROCORTISONE. [Concomitant]
     Active Substance: HYDROCORTISONE
     Indication: ADRENAL INSUFFICIENCY
  5. SYNTHROID [Concomitant]
     Active Substance: LEVOTHYROXINE SODIUM
     Indication: HYPOTHYROIDISM
  6. ANDROGEL [Suspect]
     Active Substance: TESTOSTERONE
     Indication: BLOOD TESTOSTERONE DECREASED

REACTIONS (2)
  - Cholesteatoma [Recovering/Resolving]
  - Craniopharyngioma [Recovering/Resolving]

NARRATIVE: CASE EVENT DATE: 201706
